FAERS Safety Report 8896512 (Version 1)
Quarter: 2012Q4

REPORT INFORMATION
  Report Type: Spontaneous
  Country: US (occurrence: None)
  Receive Date: 20121107
  Receipt Date: 20121107
  Transmission Date: 20130627
  Serious: Yes (Other)
  Sender: FDA-Public Use
  Company Number: None

PATIENT
  Sex: Female

DRUGS (1)
  1. VICTRELIS 200 MG [Suspect]
     Indication: HEPATITIS C
     Dosage: 200 mg, take 4 caps TID every 7-9 hrs oral
     Route: 048
     Dates: start: 20120904, end: 20120925

REACTIONS (1)
  - Hallucination [None]
